FAERS Safety Report 10065362 (Version 2)
Quarter: 2014Q3

REPORT INFORMATION
  Report Type: Spontaneous
  Country: US (occurrence: US)
  Receive Date: 20140408
  Receipt Date: 20140710
  Transmission Date: 20150326
  Serious: Yes (Other)
  Sender: FDA-Public Use
  Company Number: US-GLAXOSMITHKLINE-A0841522A

PATIENT
  Sex: Female

DRUGS (1)
  1. COREG [Suspect]
     Active Substance: CARVEDILOL
     Indication: PRODUCT USED FOR UNKNOWN INDICATION
     Dosage: 12.5MG UNKNOWN
     Route: 065
     Dates: start: 20090223

REACTIONS (3)
  - No adverse event [Unknown]
  - Expired product administered [Unknown]
  - Implantable defibrillator replacement [Unknown]
